FAERS Safety Report 18156206 (Version 1)
Quarter: 2020Q3

REPORT INFORMATION
  Report Type: Spontaneous
  Country: US (occurrence: US)
  Receive Date: 20200815
  Receipt Date: 20200815
  Transmission Date: 20201103
  Serious: No
  Sender: FDA-Public Use
  Company Number: None

PATIENT
  Age: 14 Year
  Sex: Male
  Weight: 72 kg

DRUGS (4)
  1. ADVIL [Concomitant]
     Active Substance: IBUPROFEN
  2. MELATONIN [Concomitant]
     Active Substance: MELATONIN
  3. BY PURE HAND SANITIZER [Suspect]
     Active Substance: ALCOHOL
     Indication: COVID-19 PROPHYLAXIS
     Route: 061
  4. ZYRTEC [Concomitant]
     Active Substance: CETIRIZINE HYDROCHLORIDE

REACTIONS (8)
  - Paraesthesia [None]
  - Rash [None]
  - Dizziness [None]
  - Nausea [None]
  - Swelling [None]
  - Hyperhidrosis [None]
  - Vertigo [None]
  - Flushing [None]

NARRATIVE: CASE EVENT DATE: 20200814
